FAERS Safety Report 17568115 (Version 2)
Quarter: 2020Q2

REPORT INFORMATION
  Report Type: Spontaneous
  Country: JP (occurrence: JP)
  Receive Date: 20200320
  Receipt Date: 20200403
  Transmission Date: 20200713
  Serious: Yes (Other)
  Sender: FDA-Public Use
  Company Number: JP-ASTRAZENECA-2020SE39348

PATIENT
  Age: 93 Year
  Sex: Male

DRUGS (7)
  1. LUNESTA [Suspect]
     Active Substance: ESZOPICLONE
     Indication: BENIGN PROSTATIC HYPERPLASIA
     Route: 048
     Dates: start: 20160629
  2. ROZEREM [Concomitant]
     Active Substance: RAMELTEON
     Route: 048
  3. BETANIS [Concomitant]
     Active Substance: MIRABEGRON
     Dosage: 50.0MG UNKNOWN
     Route: 065
  4. URIEF [Concomitant]
     Active Substance: SILODOSIN
     Route: 048
  5. PLAVIX [Concomitant]
     Active Substance: CLOPIDOGREL BISULFATE
     Route: 048
  6. SEROQUEL [Suspect]
     Active Substance: QUETIAPINE FUMARATE
     Indication: INSOMNIA
     Route: 048
     Dates: start: 20160629
  7. URITOS [Concomitant]
     Active Substance: IMIDAFENACIN
     Route: 065

REACTIONS (3)
  - Hallucination, visual [Recovering/Resolving]
  - Product use in unapproved indication [Unknown]
  - Off label use [Unknown]

NARRATIVE: CASE EVENT DATE: 20160629
